FAERS Safety Report 4168144 (Version 9)
Quarter: 2013Q1

REPORT INFORMATION
  Report Type: Spontaneous
  Country: JP (occurrence: JP)
  Receive Date: 20040714
  Receipt Date: 20130218
  Transmission Date: 20140127
  Serious: Yes (Hospitalization, Other)
  Sender: FDA-Public Use
  Company Number: PHBS2004JP09202

PATIENT
  Sex: Male
  Weight: 30 kg

DRUGS (13)
  1. NEORAL [Suspect]
     Indication: RENAL TRANSPLANT
     Dosage: 250 MG, PER DAY
     Route: 048
     Dates: start: 20040626, end: 20040628
  2. SIMULECT [Suspect]
     Indication: RENAL TRANSPLANT
     Dosage: 20 MG, ONCE/SINGLE
     Dates: start: 20040629, end: 20040629
  3. SIMULECT [Suspect]
     Dosage: 20 MG, ONCE/SINGLE
     Dates: start: 20040703, end: 20040703
  4. PROGRAF [Suspect]
     Indication: RENAL TRANSPLANT
     Dosage: 0.9 MG, PER DAY
     Dates: start: 20040629
  5. CELLCEPT [Concomitant]
     Indication: RENAL TRANSPLANT
     Dosage: 1000 MG, PER DAY
     Route: 048
     Dates: start: 20040629
  6. METHYLPREDNISOLONE [Concomitant]
  7. PREDONINE [Concomitant]
     Dosage: 5 MG, PER DAY
     Route: 048
     Dates: start: 20030612, end: 20040628
  8. CALCIUM CARBONATE [Concomitant]
     Route: 048
     Dates: start: 20030305, end: 20040628
  9. RENAGEL [Concomitant]
     Dosage: 750 MG, PER DAY
     Route: 048
     Dates: start: 20040526, end: 20040628
  10. MIYA-BM [Concomitant]
     Dosage: 3 G, PER DAY
     Route: 048
     Dates: start: 20040622, end: 20040628
  11. BENAMBAX [Concomitant]
     Dosage: 30 MG, PER DAY
     Dates: start: 20040625, end: 20040628
  12. EPOGIN [Concomitant]
     Route: 042
     Dates: start: 20040628, end: 20040628
  13. FESIN [Concomitant]

REACTIONS (16)
  - Leukoencephalopathy [Recovered/Resolved]
  - Convulsion [Recovered/Resolved]
  - Loss of consciousness [Recovered/Resolved]
  - Gaze palsy [Recovered/Resolved]
  - Eye movement disorder [Recovered/Resolved]
  - Dystonia [Recovered/Resolved]
  - Dyskinesia [Recovered/Resolved]
  - Muscle spasms [Recovered/Resolved]
  - Tremor [Recovered/Resolved]
  - Chills [Recovered/Resolved]
  - Body temperature increased [Recovered/Resolved]
  - Heart rate increased [Recovered/Resolved]
  - Blood pressure increased [Recovered/Resolved]
  - Oxygen saturation decreased [Recovered/Resolved]
  - Depression [Recovering/Resolving]
  - Disease progression [Unknown]
